FAERS Safety Report 9624222 (Version 1)
Quarter: 2013Q4

REPORT INFORMATION
  Report Type: Report from Study
  Country: US (occurrence: US)
  Receive Date: 20131015
  Receipt Date: 20131015
  Transmission Date: 20140711
  Serious: Yes (Hospitalization)
  Sender: FDA-Public Use
  Company Number: US-OTSUKA-US-2013-11836

PATIENT
  Age: 54 Year
  Sex: Female
  Weight: 62 kg

DRUGS (6)
  1. BUSULFEX [Suspect]
     Indication: STEM CELL TRANSPLANT
     Dosage: 52 MG MILLIGRAM(S), SINGLE
     Route: 042
     Dates: start: 20111230, end: 20111230
  2. BUSULFEX [Suspect]
     Dosage: 75 MG MILLIGRAM(S), SINGLE
     Route: 042
     Dates: start: 20120101, end: 20120101
  3. BUSULFEX [Suspect]
     Dosage: 75 MG MILLIGRAM(S), QID
     Route: 042
     Dates: start: 20120102, end: 20120103
  4. BUSULFEX [Suspect]
     Dosage: 65 MG MILLIGRAM(S), QID
     Route: 042
     Dates: start: 20120104, end: 20120104
  5. BUSULFEX [Suspect]
     Dosage: 65 MG MILLIGRAM(S), BID
     Route: 042
     Dates: start: 20120105, end: 20120105
  6. NC-ETOPOSIDE [Suspect]
     Indication: STEM CELL TRANSPLANT
     Dosage: 20 MG/ML, SINGLE (1G/50 ML)
     Route: 042
     Dates: start: 20120106, end: 20120106

REACTIONS (1)
  - Aplastic anaemia [Unknown]
